FAERS Safety Report 22133441 (Version 1)
Quarter: 2023Q1

REPORT INFORMATION
  Report Type: Other
  Country: AU (occurrence: AU)
  Receive Date: 20230324
  Receipt Date: 20230324
  Transmission Date: 20230417
  Serious: Yes (Other)
  Sender: FDA-Public Use
  Company Number: AU-CELLTRION INC.-2023AU006136

PATIENT

DRUGS (8)
  1. ADALIMUMAB [Suspect]
     Active Substance: ADALIMUMAB
     Indication: Product used for unknown indication
  2. RITUXIMAB [Suspect]
     Active Substance: RITUXIMAB
     Indication: Product used for unknown indication
  3. TOCILIZUMAB [Concomitant]
     Active Substance: TOCILIZUMAB
  4. AZATHIOPRINE [Concomitant]
     Active Substance: AZATHIOPRINE
  5. COLCHICINE [Concomitant]
     Active Substance: COLCHICINE
  6. METHOTREXATE [Concomitant]
     Active Substance: METHOTREXATE
  7. PREDNISONE [Concomitant]
     Active Substance: PREDNISONE
  8. TACROLIMUS [Concomitant]
     Active Substance: TACROLIMUS

REACTIONS (4)
  - Idiopathic orbital inflammation [Unknown]
  - Septic shock [Unknown]
  - Off label use [Unknown]
  - Drug ineffective for unapproved indication [Unknown]
